FAERS Safety Report 7290278 (Version 8)
Quarter: 2013Q1

REPORT INFORMATION
  Report Type: Report from Study
  Country: JP (occurrence: JP)
  Receive Date: 20100223
  Receipt Date: 20130301
  Transmission Date: 20140127
  Serious: Yes (Hospitalization)
  Sender: FDA-Public Use
  Company Number: JP-ROCHE-577135

PATIENT
  Age: 74 Year
  Sex: Female
  Weight: 60.5 kg

DRUGS (24)
  1. EPIRUBICIN [Suspect]
     Indication: BREAST CANCER
     Dosage: DOSAGE FORM REPORTED AS 143 MG
     Route: 042
     Dates: start: 20080630, end: 20080630
  2. EPIRUBICIN [Suspect]
     Dosage: LAST DOSE PRIOR TO SAE: 24 SEP 2008
     Route: 042
     Dates: start: 20080812, end: 20080924
  3. CYCLOPHOSPHAMIDE [Suspect]
     Indication: BREAST CANCER
     Dosage: DOSAGE FORM REPORTED AS 955 MG
     Route: 042
     Dates: start: 20080630, end: 20080630
  4. CYCLOPHOSPHAMIDE [Suspect]
     Dosage: LAST DOSE PRIOR TO SAE: 24 SEPT 2008
     Route: 042
     Dates: start: 20080812, end: 20080924
  5. DOCETAXEL [Suspect]
     Indication: BREAST CANCER
     Dosage: DRUG NAME: DOCETAXEL HYDRATE, DOSE FORM: 109 MG, LAST DOSE PRIOR TO SAE: 07 JAN 2009
     Route: 042
     Dates: start: 20081022, end: 20090107
  6. LAC-B [Concomitant]
     Route: 065
     Dates: start: 2003, end: 201206
  7. MAGNESIUM OXIDE [Concomitant]
     Route: 065
  8. ZOLPIDEM [Concomitant]
     Route: 065
     Dates: start: 20081212, end: 20120301
  9. TRIMEBUTINE [Concomitant]
     Route: 065
  10. TRIAZOLAM [Concomitant]
  11. N-METHYLSCOPOLAMINE METHYLSULFATE [Concomitant]
     Dosage: DRUG REPORTED AS METYL SCOPOLAMINE METYLSULFATE
     Route: 065
  12. HYALURONATE SODIUM [Concomitant]
     Route: 065
  13. ETIZOLAM [Concomitant]
     Route: 065
  14. KETOPROFEN [Concomitant]
     Route: 065
  15. ALPRAZOLAM [Concomitant]
     Route: 065
     Dates: start: 20080711
  16. ZOPICLONE [Concomitant]
     Route: 065
     Dates: start: 20080902
  17. REBAMIPIDE [Concomitant]
     Route: 065
     Dates: start: 20090113
  18. RINDERON [Concomitant]
     Route: 065
     Dates: start: 20081021
  19. MECOBALAMIN [Concomitant]
     Route: 065
     Dates: start: 201209
  20. SODIUM FERROUS CITRATE [Concomitant]
     Route: 065
     Dates: start: 201207
  21. DIFENIDOL HYDROCHLORIDE [Concomitant]
     Route: 065
     Dates: start: 201209
  22. ADENOSINE TRIPHOSPHATE DISODIUM [Concomitant]
     Route: 065
     Dates: start: 201209
  23. BEVACIZUMAB [Suspect]
     Indication: BREAST CANCER
     Dosage: DOSAGE FORM REPORTED AS 950 MG
     Route: 042
     Dates: start: 20080630, end: 20080630
  24. BEVACIZUMAB [Suspect]
     Dosage: LAST DOSE PRIOR TO SAE: 03 SEP 2008
     Route: 042
     Dates: start: 20080812, end: 20080922

REACTIONS (2)
  - Diverticulitis intestinal haemorrhagic [Recovered/Resolved]
  - Diverticulitis intestinal haemorrhagic [Recovered/Resolved]
